FAERS Safety Report 22012997 (Version 2)
Quarter: 2023Q1

REPORT INFORMATION
  Report Type: Report from Study
  Country: US (occurrence: US)
  Receive Date: 20230220
  Receipt Date: 20230221
  Transmission Date: 20230418
  Serious: No
  Sender: FDA-Public Use
  Company Number: US-002147023-NVSC2023US037886

PATIENT
  Sex: Female

DRUGS (1)
  1. COSENTYX [Suspect]
     Active Substance: SECUKINUMAB
     Indication: Juvenile psoriatic arthritis
     Dosage: 75 MG, QW (QW FOR 5 WEEKS AND THEN QMO)
     Route: 058

REACTIONS (1)
  - Injection site pain [Unknown]
